FAERS Safety Report 6355824-0 (Version None)
Quarter: 2009Q3

REPORT INFORMATION
  Report Type: 
  Country: None (occurrence: None)
  Receive Date: 20090911
  Receipt Date: 20090911
  Transmission Date: 20100115
  Serious: Yes (Life-Threatening, Other)
  Sender: FDA-Public Use
  Company Number: None

PATIENT
  Sex: Female
  Weight: 59.8748 kg

DRUGS (1)
  1. AMPHETAMINE SULFATE [Suspect]
     Indication: ATTENTION DEFICIT/HYPERACTIVITY DISORDER
     Dosage: 20MG BID P.O.
     Route: 048
     Dates: start: 20090709, end: 20090815

REACTIONS (16)
  - ABNORMAL BEHAVIOUR [None]
  - AGITATION [None]
  - ALCOHOL POISONING [None]
  - ALCOHOL USE [None]
  - ANXIETY [None]
  - ECONOMIC PROBLEM [None]
  - EUPHORIC MOOD [None]
  - FEELING ABNORMAL [None]
  - IMPRISONMENT [None]
  - IRRITABILITY [None]
  - MANIA [None]
  - MENOPAUSE [None]
  - MENTAL DISORDER [None]
  - NERVOUS SYSTEM DISORDER [None]
  - PARTNER STRESS [None]
  - PRODUCT QUALITY ISSUE [None]
